FAERS Safety Report 20912102 (Version 1)
Quarter: 2022Q2

REPORT INFORMATION
  Report Type: Spontaneous
  Country: US (occurrence: US)
  Receive Date: 20220603
  Receipt Date: 20220603
  Transmission Date: 20220720
  Serious: Yes (Other)
  Sender: FDA-Public Use
  Company Number: US-SA-SAC20220601000698

PATIENT
  Age: 57 Year
  Sex: Male

DRUGS (1)
  1. ZANTAC [Suspect]
     Active Substance: RANITIDINE HYDROCHLORIDE
     Dosage: 25 MG, QW
     Route: 065
     Dates: start: 199404, end: 201402

REACTIONS (2)
  - Bladder cancer stage II [Unknown]
  - Prostate cancer stage II [Unknown]

NARRATIVE: CASE EVENT DATE: 20160801
